FAERS Safety Report 5376004-1 (Version None)
Quarter: 2007Q2

REPORT INFORMATION
  Report Type: 
  Country: None (occurrence: None)
  Receive Date: 20070627
  Receipt Date: 20070627
  Transmission Date: 20071010
  Serious: Yes (Other)
  Sender: FDA-Public Use
  Company Number: None

PATIENT
  Sex: Female
  Weight: 48.9885 kg

DRUGS (1)
  1. ORTHO TRI-CYCLEN [Suspect]
     Indication: DYSFUNCTIONAL UTERINE BLEEDING
     Dosage: 28 DAY
     Dates: start: 20010101

REACTIONS (2)
  - WITHDRAWAL BLEED [None]
  - WITHDRAWAL BLEEDING IRREGULAR [None]
